FAERS Safety Report 8150022 (Version 3)
Quarter: 2013Q3

REPORT INFORMATION
  Report Type: Spontaneous
  Country: US (occurrence: US)
  Receive Date: 20110922
  Receipt Date: 20130906
  Transmission Date: 20140515
  Serious: Yes (Hospitalization)
  Sender: FDA-Public Use
  Company Number: US-GLAXOSMITHKLINE-A0915651A

PATIENT
  Age: 65 Year
  Sex: Male
  Weight: 114.5 kg

DRUGS (1)
  1. AVANDIA [Suspect]
     Indication: DIABETES MELLITUS
     Dosage: 8MG PER DAY
     Route: 048
     Dates: start: 200511, end: 200707

REACTIONS (3)
  - Atrial fibrillation [Unknown]
  - Ventricular tachycardia [Unknown]
  - Cardiac arrest [Unknown]
